FAERS Safety Report 11880431 (Version 7)
Quarter: 2020Q1

REPORT INFORMATION
  Report Type: Report from Study
  Country: US (occurrence: US)
  Receive Date: 20151230
  Receipt Date: 20200114
  Transmission Date: 20200409
  Serious: Yes (Other)
  Sender: FDA-Public Use
  Company Number: PHEH2015US027132

PATIENT
  Age: 28 Year
  Sex: Female

DRUGS (5)
  1. AFINITOR [Suspect]
     Active Substance: EVEROLIMUS
     Indication: ANGIOMYOLIPOMA
     Dosage: 2.5 MG, DAILY
     Route: 048
     Dates: start: 20151124
  2. AFINITOR [Suspect]
     Active Substance: EVEROLIMUS
     Dosage: 2.5 MG, THREE TIMES PER WEEK
     Route: 048
     Dates: end: 20160121
  3. EUCERIN [Concomitant]
     Active Substance: ENSULIZOLE\EUCERIN\OCTINOXATE\OCTISALATE\TITANIUM DIOXIDE\ZINC OXIDE
     Indication: TUBEROUS SCLEROSIS COMPLEX
     Route: 061
  4. RAPAMUNE [Concomitant]
     Active Substance: SIROLIMUS
     Indication: TUBEROUS SCLEROSIS COMPLEX
     Route: 061
  5. EVEROLIMUS. [Suspect]
     Active Substance: EVEROLIMUS
     Indication: ANGIOMYOLIPOMA
     Dosage: UNK
     Route: 065
     Dates: start: 2006

REACTIONS (17)
  - Urticaria [Unknown]
  - Dysmenorrhoea [Unknown]
  - Frequent bowel movements [Unknown]
  - Stomatitis [Not Recovered/Not Resolved]
  - Renal mass [Unknown]
  - Mouth swelling [Unknown]
  - Pruritus [Unknown]
  - Constipation [Unknown]
  - Rash [Unknown]
  - Influenza [Not Recovered/Not Resolved]
  - Drug ineffective [Unknown]
  - Pain [Unknown]
  - Abdominal pain upper [Not Recovered/Not Resolved]
  - Headache [Not Recovered/Not Resolved]
  - Hepatic mass [Unknown]
  - Tongue disorder [Unknown]
  - Diarrhoea [Unknown]

NARRATIVE: CASE EVENT DATE: 2006
